FAERS Safety Report 7135498-1 (Version None)
Quarter: 2010Q4

REPORT INFORMATION
  Report Type: 
  Country: None (occurrence: None)
  Receive Date: 20101203
  Receipt Date: 20101125
  Transmission Date: 20110411
  Serious: Yes (Hospitalization)
  Sender: FDA-Public Use
  Company Number: ES-ABBOTT-10P-144-0681331-00

PATIENT
  Age: 75 Year
  Sex: Male

DRUGS (3)
  1. HUMIRA [Suspect]
     Indication: ERYTHRODERMIC PSORIASIS
     Route: 058
     Dates: start: 20091027, end: 20101007
  2. ORAL ANTI-DIABETIC DRUGS (NOT SPECIFIED) [Concomitant]
     Indication: TYPE 2 DIABETES MELLITUS
  3. ZYLORICR [Concomitant]
     Indication: BLOOD URIC ACID INCREASED

REACTIONS (3)
  - PLEURAL EFFUSION [None]
  - PULMONARY TUBERCULOSIS [None]
  - RENAL FAILURE [None]
